FAERS Safety Report 10155304 (Version 2)
Quarter: 2014Q2

REPORT INFORMATION
  Report Type: Report from Study
  Country: MX (occurrence: MX)
  Receive Date: 20140506
  Receipt Date: 20140506
  Transmission Date: 20141212
  Serious: Yes (Other)
  Sender: FDA-Public Use
  Company Number: PHHY2012MX076130

PATIENT
  Sex: Female

DRUGS (1)
  1. DIOVAN [Suspect]
     Indication: HYPERTENSION
     Dosage: 2 TABLETS (160 MG), UNK
     Route: 048
     Dates: start: 201004

REACTIONS (8)
  - Macular degeneration [Unknown]
  - Blindness unilateral [Unknown]
  - Visual impairment [Unknown]
  - General physical health deterioration [Not Recovered/Not Resolved]
  - Cardiomegaly [Not Recovered/Not Resolved]
  - Arthritis [Not Recovered/Not Resolved]
  - Memory impairment [Unknown]
  - Reading disorder [Not Recovered/Not Resolved]
